FAERS Safety Report 4369114-9 (Version None)
Quarter: 2004Q2

REPORT INFORMATION
  Report Type: 
  Country: None (occurrence: None)
  Receive Date: 20040601
  Receipt Date: 20040601
  Transmission Date: 20050107
  Serious: Yes (Other)
  Sender: FDA-Public Use
  Company Number: None

PATIENT
  Age: 86 Year
  Sex: Female
  Weight: 66.6788 kg

DRUGS (5)
  1. LIPITOR [Suspect]
     Indication: HYPERLIPIDAEMIA
     Dosage: 1/2 TAB PO QD
     Route: 048
     Dates: start: 20030701, end: 20040301
  2. ATENOLOL [Concomitant]
  3. ACIPHEX [Concomitant]
  4. ALPHANGAN [Concomitant]
  5. TIMOPTIC [Concomitant]

REACTIONS (2)
  - ALOPECIA [None]
  - MYALGIA [None]
